FAERS Safety Report 16945544 (Version 1)
Quarter: 2019Q4

REPORT INFORMATION
  Report Type: Spontaneous
  Country: US (occurrence: US)
  Receive Date: 20190830
  Receipt Date: 20190830
  Transmission Date: 20200122
  Serious: No
  Sender: FDA-Public Use
  Company Number: None

PATIENT
  Age: 50 Year
  Sex: Female
  Weight: 70.1 kg

DRUGS (1)
  1. OLANZAPINE. [Suspect]
     Active Substance: OLANZAPINE
     Dates: end: 20190824

REACTIONS (3)
  - White blood cell count decreased [None]
  - Pneumonitis [None]
  - Neutrophil count decreased [None]

NARRATIVE: CASE EVENT DATE: 20190828
